FAERS Safety Report 10464975 (Version 2)
Quarter: 2014Q4

REPORT INFORMATION
  Report Type: Spontaneous
  Country: US (occurrence: US)
  Receive Date: 20140919
  Receipt Date: 20141016
  Transmission Date: 20150528
  Serious: Yes (Other)
  Sender: FDA-Public Use
  Company Number: US-GLAXOSMITHKLINE-A1089247A

PATIENT
  Age: 77 Year
  Sex: Female

DRUGS (12)
  1. ADVAIR HFA [Suspect]
     Active Substance: FLUTICASONE PROPIONATE\SALMETEROL XINAFOATE
     Indication: CHRONIC OBSTRUCTIVE PULMONARY DISEASE
     Dosage: 1 PUFF(S), BID
     Route: 055
     Dates: start: 2013
  2. POTASSIUM CHLORIDE. [Concomitant]
     Active Substance: POTASSIUM CHLORIDE
  3. VENTOLIN HFA [Concomitant]
     Active Substance: ALBUTEROL SULFATE
  4. FUROSEMIDE. [Concomitant]
     Active Substance: FUROSEMIDE
  5. OMEPRAZOLE. [Concomitant]
     Active Substance: OMEPRAZOLE
  6. BUPROPION SR [Concomitant]
     Active Substance: BUPROPION
  7. VITAMIN D3 [Concomitant]
     Active Substance: CHOLECALCIFEROL
  8. ASTEPRO [Concomitant]
     Active Substance: AZELASTINE HYDROCHLORIDE
  9. CLONAZEPAM. [Concomitant]
     Active Substance: CLONAZEPAM
  10. CITALOPRAM [Concomitant]
     Active Substance: CITALOPRAM HYDROBROMIDE
  11. ATENOLOL. [Concomitant]
     Active Substance: ATENOLOL
  12. ASPIRIN. [Concomitant]
     Active Substance: ASPIRIN

REACTIONS (3)
  - Asthenia [Unknown]
  - Skin cancer [Unknown]
  - Gait disturbance [Unknown]

NARRATIVE: CASE EVENT DATE: 20140825
